FAERS Safety Report 15689071 (Version 2)
Quarter: 2018Q4

REPORT INFORMATION
  Report Type: Spontaneous
  Country: JP (occurrence: JP)
  Receive Date: 20181205
  Receipt Date: 20181213
  Transmission Date: 20190205
  Serious: Yes (Hospitalization)
  Sender: FDA-Public Use
  Company Number: JP-OTSUKA-2018_034743

PATIENT
  Sex: Female

DRUGS (2)
  1. LEPETAN 0.2 MG SUPPOSITORY [Suspect]
     Active Substance: BUPRENORPHINE HYDROCHLORIDE
     Indication: ILL-DEFINED DISORDER
  2. LEPETAN 0.2 MG SUPPOSITORY [Suspect]
     Active Substance: BUPRENORPHINE HYDROCHLORIDE
     Indication: PAIN
     Dosage: 0.6 MG/DAY (THREE TO FOUR TIMES DAILY)
     Route: 054

REACTIONS (3)
  - Haemorrhoids [Recovered/Resolved]
  - Hospitalisation [Unknown]
  - Product use in unapproved indication [Not Recovered/Not Resolved]
